FAERS Safety Report 23143408 (Version 1)
Quarter: 2023Q4

REPORT INFORMATION
  Report Type: Spontaneous
  Country: US (occurrence: US)
  Receive Date: 20231103
  Receipt Date: 20231103
  Transmission Date: 20240110
  Serious: Yes (Other)
  Sender: FDA-Public Use
  Company Number: US-PFIZER INC-PV202300179291

PATIENT
  Age: 6 Decade
  Sex: Female

DRUGS (8)
  1. KETAMINE HYDROCHLORIDE [Suspect]
     Active Substance: KETAMINE HYDROCHLORIDE
     Indication: Brachioradial pruritus
     Dosage: 125 MG (FIRST TREATMENT)
     Route: 042
  2. LIDOCAINE HYDROCHLORIDE [Suspect]
     Active Substance: DEXTROSE MONOHYDRATE\EPINEPHRINE\EPINEPHRINE BITARTRATE\LIDOCAINE\LIDOCAINE HYDROCHLORIDE\LIDOCAINE
     Indication: Brachioradial pruritus
     Dosage: 100 MG (FIRST TREATMENT), INFUSED OVER 50 MINUTES
     Route: 042
  3. BUPIVACAINE HYDROCHLORIDE [Suspect]
     Active Substance: BUPIVACAINE HYDROCHLORIDE
     Indication: Brachioradial pruritus
     Dosage: UNK
     Route: 042
  4. AMITRIPTYLINE [Concomitant]
     Active Substance: AMITRIPTYLINE
     Indication: Pruritus
     Dosage: UNK
     Route: 061
  5. GABAPENTIN [Concomitant]
     Active Substance: GABAPENTIN
     Indication: Pruritus
     Dosage: UNK
  6. PREDNISONE [Concomitant]
     Active Substance: PREDNISONE
     Indication: Pruritus
     Dosage: UNK
  7. DOXEPIN [Concomitant]
     Active Substance: DOXEPIN
     Indication: Pruritus
     Dosage: UNK
  8. NALTREXONE [Suspect]
     Active Substance: NALTREXONE
     Indication: Pruritus
     Dosage: UNK

REACTIONS (1)
  - Gastrointestinal disorder [Recovering/Resolving]
